FAERS Safety Report 4350267-3 (Version None)
Quarter: 2004Q2

REPORT INFORMATION
  Report Type: 
  Country: None (occurrence: None)
  Receive Date: 20040428
  Receipt Date: 20040409
  Transmission Date: 20050107
  Serious: Yes (Hospitalization)
  Sender: FDA-Public Use
  Company Number: DSA_24213_2004

PATIENT
  Age: 53 Year
  Sex: Male

DRUGS (2)
  1. LORAZEPAM [Suspect]
     Dosage: 38 TAB PO
     Route: 048
     Dates: start: 20040331, end: 20040401
  2. ALCOHOL [Suspect]
     Dosage: 3 BOTTLE PO
     Route: 048
     Dates: start: 20040331, end: 20040401

REACTIONS (5)
  - DELIRIUM [None]
  - FEELING DRUNK [None]
  - INTENTIONAL OVERDOSE [None]
  - SOMNOLENCE [None]
  - TRANSAMINASES INCREASED [None]
